FAERS Safety Report 24893510 (Version 3)
Quarter: 2025Q1

REPORT INFORMATION
  Report Type: Report from Study
  Country: US (occurrence: US)
  Receive Date: 20250128
  Receipt Date: 20250325
  Transmission Date: 20250409
  Serious: No
  Sender: SUNOVION
  Company Number: US-SMPA-2025SPA000556AA

PATIENT

DRUGS (15)
  1. ORGOVYX [Suspect]
     Active Substance: RELUGOLIX
     Indication: Prostate cancer
     Dosage: 360 MG, SINGLE
     Route: 048
     Dates: start: 20241226, end: 20241226
  2. ORGOVYX [Suspect]
     Active Substance: RELUGOLIX
     Dosage: 120 MG, QD
     Route: 048
     Dates: start: 20241227
  3. NALOXONE [Concomitant]
     Active Substance: NALOXONE
     Route: 065
  4. LISINOPRIL [Concomitant]
     Active Substance: LISINOPRIL
     Route: 065
  5. OXYCODONE [Concomitant]
     Active Substance: OXYCODONE
     Route: 065
  6. MAGNESIUM [Concomitant]
     Active Substance: MAGNESIUM
     Route: 065
  7. NITROFURANTOIN [Concomitant]
     Active Substance: NITROFURANTOIN
     Route: 065
  8. NITROGLYCERIN [Concomitant]
     Active Substance: NITROGLYCERIN
     Route: 065
  9. OMEPRAZOLE [Concomitant]
     Active Substance: OMEPRAZOLE
     Route: 065
  10. POLYETHYLENE GLYCOL [Concomitant]
     Active Substance: POLYETHYLENE GLYCOL
     Route: 065
  11. PREGABALIN [Concomitant]
     Active Substance: PREGABALIN
     Route: 065
  12. TIZANIDINE [Concomitant]
     Active Substance: TIZANIDINE
     Route: 065
  13. VENLAFAXINE [Concomitant]
     Active Substance: VENLAFAXINE HYDROCHLORIDE
     Route: 065
  14. VENTOLIN [Concomitant]
     Active Substance: ALBUTEROL SULFATE
     Route: 065
  15. MIRALAX [Concomitant]
     Active Substance: POLYETHYLENE GLYCOL 3350
     Route: 065

REACTIONS (9)
  - Dysphagia [Unknown]
  - Frequent bowel movements [Unknown]
  - Hot flush [Unknown]
  - Fatigue [Unknown]
  - Asthenia [Unknown]
  - Nausea [Unknown]
  - Product dose omission issue [Unknown]
  - Product dose omission in error [Unknown]
  - Therapy interrupted [Unknown]

NARRATIVE: CASE EVENT DATE: 20250101
